FAERS Safety Report 6207684-6 (Version None)
Quarter: 2009Q2

REPORT INFORMATION
  Report Type: 
  Country: None (occurrence: None)
  Receive Date: 20090528
  Receipt Date: 20090522
  Transmission Date: 20091009
  Serious: Yes (Death)
  Sender: FDA-Public Use
  Company Number: US-GILEAD-2009-0022116

PATIENT
  Sex: Male
  Weight: 83.99 kg

DRUGS (9)
  1. LETAIRIS [Suspect]
     Indication: PULMONARY ARTERIAL HYPERTENSION
     Route: 048
     Dates: start: 20080617
  2. COUMADIN [Concomitant]
  3. HYDROCHLOROTHIAZIDE [Concomitant]
  4. FUROSEMIDE [Concomitant]
  5. OXYGEN [Concomitant]
  6. VENTAVIS [Concomitant]
     Dates: start: 20071221
  7. ALBUTEROL [Concomitant]
  8. KAON CL [Concomitant]
  9. BENZONATATE [Concomitant]

REACTIONS (1)
  - DEATH [None]
